FAERS Safety Report 6305901-5 (Version None)
Quarter: 2009Q3

REPORT INFORMATION
  Report Type: 
  Country: None (occurrence: None)
  Receive Date: 20090810
  Receipt Date: 20090810
  Transmission Date: 20100115
  Serious: No
  Sender: FDA-Public Use
  Company Number: None

PATIENT
  Sex: Male
  Weight: 99 kg

DRUGS (13)
  1. CYCLOPHOSPHAMIDE [Suspect]
     Dosage: 1284 MG
  2. DOXIL [Suspect]
     Dosage: 75 MG
  3. NEULASTA [Suspect]
     Dosage: 6 MG
  4. PREDNISONE TAB [Suspect]
     Dosage: 400 MG
  5. RITUXIMAB (MOAB C2B8 ANTI CD20, CHIMERIC) 690 MG [Suspect]
     Dosage: 803 MG
  6. VINCRISTINE SULFATE [Suspect]
     Dosage: 2 MG
  7. ALLOPURINOL [Concomitant]
  8. COUMADIN [Concomitant]
  9. FLONASE [Concomitant]
  10. LISINOPRIL [Concomitant]
  11. PANTOPRAZOLE SODIUM [Concomitant]
  12. SYNTHROID [Concomitant]
  13. TERAZOSIN HCL [Concomitant]

REACTIONS (1)
  - EJECTION FRACTION DECREASED [None]
